FAERS Safety Report 4355679-X (Version None)
Quarter: 2004Q2

REPORT INFORMATION
  Report Type: 
  Country: None (occurrence: None)
  Receive Date: 20040507
  Receipt Date: 20040427
  Transmission Date: 20050107
  Serious: Yes (Hospitalization)
  Sender: FDA-Public Use
  Company Number: STA-AE-03-MTX-045

PATIENT
  Age: 75 Year
  Sex: Female

DRUGS (7)
  1. METHOTREXATE [Suspect]
     Indication: RHEUMATOID ARTHRITIS
     Dosage: 7.5 MG 1X PER WEEK, ORAL
     Route: 048
     Dates: start: 20020201
  2. CELEBREX [Suspect]
     Dosage: 200 MG 1 X PER 1 DAY, ORAL
     Route: 048
     Dates: start: 20011001
  3. DILACOR XR (DILTIAZEM HYDROCHLORIDE) [Concomitant]
  4. FOLIC ACID [Concomitant]
  5. PREMARIN [Concomitant]
  6. POTASSIUM CHLORIDE [Concomitant]
  7. ENDURONYL (DESERPIDINE/METHYCHLOTHIAZIDE) [Concomitant]

REACTIONS (3)
  - BLOOD CREATININE INCREASED [None]
  - BLOOD UREA INCREASED [None]
  - GRAND MAL CONVULSION [None]
